FAERS Safety Report 22372404 (Version 1)
Quarter: 2023Q2

REPORT INFORMATION
  Report Type: Spontaneous
  Country: CA (occurrence: CA)
  Receive Date: 20230526
  Receipt Date: 20230526
  Transmission Date: 20230721
  Serious: Yes (Other)
  Sender: FDA-Public Use
  Company Number: CA-ORGANON-O2305CAN002518

PATIENT
  Age: 77 Year
  Sex: Male

DRUGS (41)
  1. SINEMET [Suspect]
     Active Substance: CARBIDOPA\LEVODOPA
     Indication: Tremor
     Dosage: UNK
     Route: 065
  2. SINEMET [Suspect]
     Active Substance: CARBIDOPA\LEVODOPA
     Indication: Dysphonia
     Dosage: UNK
     Route: 065
  3. AMANTADINE [Suspect]
     Active Substance: AMANTADINE
     Indication: Resting tremor
     Dosage: 100 MILLIGRAM, 2 EVERY 1 DAYS
     Route: 065
  4. AMANTADINE [Suspect]
     Active Substance: AMANTADINE
     Indication: Parkinsonian rest tremor
     Dosage: 100 MILLIGRAM, 2 EVERY 1 DAYS
     Route: 065
  5. AMANTADINE [Suspect]
     Active Substance: AMANTADINE
     Indication: Parkinson^s disease
     Dosage: 100 MILLIGRAM, 1 EVERY 1 DAYS
     Route: 065
  6. AMANTADINE [Suspect]
     Active Substance: AMANTADINE
     Indication: Head titubation
     Dosage: 200 MILLIGRAM, 1 EVERY 1 DAYS
     Route: 065
  7. BENSERAZIDE HYDROCHLORIDE\LEVODOPA [Suspect]
     Active Substance: BENSERAZIDE HYDROCHLORIDE\LEVODOPA
     Indication: Resting tremor
     Dosage: UNK, 3 EVERY 1 DAYS
     Route: 065
  8. BENSERAZIDE HYDROCHLORIDE\LEVODOPA [Suspect]
     Active Substance: BENSERAZIDE HYDROCHLORIDE\LEVODOPA
     Indication: Parkinson^s disease
     Dosage: UNK, 3 EVERY 1 DAYS
     Route: 065
  9. CLONAZEPAM [Suspect]
     Active Substance: CLONAZEPAM
     Indication: Parkinsonian rest tremor
     Dosage: UNK
     Route: 065
  10. CLONAZEPAM [Suspect]
     Active Substance: CLONAZEPAM
     Indication: Parkinson^s disease
     Dosage: UNK
     Route: 065
  11. CLONAZEPAM [Suspect]
     Active Substance: CLONAZEPAM
     Indication: Head titubation
     Dosage: UNK
     Route: 065
  12. GABAPENTIN [Suspect]
     Active Substance: GABAPENTIN
     Indication: Resting tremor
     Dosage: UNK
     Route: 065
  13. GABAPENTIN [Suspect]
     Active Substance: GABAPENTIN
     Indication: Parkinsonian rest tremor
     Dosage: UNK
     Route: 065
  14. GABAPENTIN [Suspect]
     Active Substance: GABAPENTIN
     Indication: Parkinson^s disease
     Dosage: UNK (DOSAGE FORM: NOT SPECIFIED)
     Route: 065
  15. GABAPENTIN [Suspect]
     Active Substance: GABAPENTIN
     Indication: Head titubation
     Dosage: UNK
     Route: 065
  16. PRAMIPEXOLE [Suspect]
     Active Substance: PRAMIPEXOLE
     Indication: Resting tremor
     Dosage: UNK
     Route: 065
  17. PRAMIPEXOLE [Suspect]
     Active Substance: PRAMIPEXOLE
     Indication: Parkinsonian rest tremor
     Dosage: UNK
     Route: 065
  18. PRAMIPEXOLE [Suspect]
     Active Substance: PRAMIPEXOLE
     Indication: Parkinson^s disease
     Dosage: 1 MILLIGRAM, 3 EVERY 1 DAYS, DOSAGE FORM : NOT SPECIFIED
     Route: 065
  19. PRAMIPEXOLE [Suspect]
     Active Substance: PRAMIPEXOLE
     Indication: Head titubation
     Dosage: UNK
     Route: 065
  20. PRIMIDONE [Suspect]
     Active Substance: PRIMIDONE
     Indication: Resting tremor
     Dosage: UNK
     Route: 065
  21. PRIMIDONE [Suspect]
     Active Substance: PRIMIDONE
     Indication: Parkinsonian rest tremor
     Dosage: UNK
     Route: 065
  22. PRIMIDONE [Suspect]
     Active Substance: PRIMIDONE
     Indication: Parkinson^s disease
     Dosage: UNK
     Route: 065
  23. PRIMIDONE [Suspect]
     Active Substance: PRIMIDONE
     Indication: Head titubation
     Dosage: UNK
     Route: 065
  24. PROPRANOLOL HYDROCHLORIDE [Suspect]
     Active Substance: PROPRANOLOL HYDROCHLORIDE
     Indication: Resting tremor
     Dosage: UNK, (DOSAAGE FORM : PROLONED- RELEASE CAPSULE)
     Route: 065
  25. PROPRANOLOL HYDROCHLORIDE [Suspect]
     Active Substance: PROPRANOLOL HYDROCHLORIDE
     Indication: Parkinsonian rest tremor
     Dosage: UNK
     Route: 065
  26. PROPRANOLOL HYDROCHLORIDE [Suspect]
     Active Substance: PROPRANOLOL HYDROCHLORIDE
     Indication: Parkinson^s disease
     Dosage: UNK, (DOSAAGE FORM : PROLONED- RELEASE CAPSULE)
     Route: 065
  27. PROPRANOLOL HYDROCHLORIDE [Suspect]
     Active Substance: PROPRANOLOL HYDROCHLORIDE
     Indication: Head titubation
     Dosage: UNK, (DOSAAGE FORM : PROLONED- RELEASE CAPSULE)
     Route: 065
  28. ROPINIROLE HYDROCHLORIDE [Suspect]
     Active Substance: ROPINIROLE HYDROCHLORIDE
     Indication: Resting tremor
     Dosage: UNK
     Route: 065
  29. ROPINIROLE HYDROCHLORIDE [Suspect]
     Active Substance: ROPINIROLE HYDROCHLORIDE
     Indication: Parkinsonian rest tremor
     Dosage: UNK
     Route: 065
  30. ROPINIROLE HYDROCHLORIDE [Suspect]
     Active Substance: ROPINIROLE HYDROCHLORIDE
     Indication: Parkinson^s disease
     Dosage: UNK
     Route: 065
  31. ROPINIROLE HYDROCHLORIDE [Suspect]
     Active Substance: ROPINIROLE HYDROCHLORIDE
     Indication: Head titubation
     Dosage: UNK
     Route: 065
  32. SELEGILINE [Suspect]
     Active Substance: SELEGILINE
     Indication: Tremor
     Dosage: UNK
     Route: 065
  33. SELEGILINE [Suspect]
     Active Substance: SELEGILINE
     Indication: Dysphonia
     Dosage: UNK
     Route: 065
  34. ETHOPROPAZINE [Concomitant]
     Active Substance: ETHOPROPAZINE
     Indication: Resting tremor
     Dosage: UNK
     Route: 065
  35. ETHOPROPAZINE [Concomitant]
     Active Substance: ETHOPROPAZINE
     Indication: Parkinsonian rest tremor
  36. ETHOPROPAZINE [Concomitant]
     Active Substance: ETHOPROPAZINE
     Indication: Parkinson^s disease
  37. ETHOPROPAZINE [Concomitant]
     Active Substance: ETHOPROPAZINE
     Indication: Head titubation
  38. TRIHEXYPHENIDYL [Concomitant]
     Active Substance: TRIHEXYPHENIDYL
     Indication: Resting tremor
     Dosage: 2 MILLIGRAM, 3 EVERY 1 DAYS
     Route: 065
  39. TRIHEXYPHENIDYL [Concomitant]
     Active Substance: TRIHEXYPHENIDYL
     Indication: Parkinsonian rest tremor
  40. TRIHEXYPHENIDYL [Concomitant]
     Active Substance: TRIHEXYPHENIDYL
     Indication: Parkinson^s disease
  41. TRIHEXYPHENIDYL [Concomitant]
     Active Substance: TRIHEXYPHENIDYL
     Indication: Head titubation

REACTIONS (6)
  - Dizziness [Unknown]
  - Drug ineffective [Unknown]
  - Hallucination [Unknown]
  - Oedema peripheral [Unknown]
  - Off label use [Unknown]
  - Somnolence [Unknown]
